FAERS Safety Report 5249334-1 (Version None)
Quarter: 2007Q1

REPORT INFORMATION
  Report Type: 
  Country: None (occurrence: None)
  Receive Date: 20061201
  Receipt Date: 20060822
  Transmission Date: 20070707
  Serious: No
  Sender: FDA-Public Use
  Company Number: 2006PV019930

PATIENT
  Age: 51 Year
  Sex: Male
  Weight: 122.4712 kg

DRUGS (3)
  1. BYETTA [Suspect]
     Dosage: 5 MCG; BID; SC
     Route: 058
     Dates: start: 20060820
  2. METFORMIN HCL [Concomitant]
  3. HUMULIN 70/30 [Concomitant]

REACTIONS (1)
  - BLOOD GLUCOSE INCREASED [None]
